FAERS Safety Report 17199306 (Version 2)
Quarter: 2021Q1

REPORT INFORMATION
  Report Type: Spontaneous
  Country: US (occurrence: US)
  Receive Date: 20191225
  Receipt Date: 20210302
  Transmission Date: 20210419
  Serious: Yes (Death, Other)
  Sender: FDA-Public Use
  Company Number: US-ASTRAZENECA-2019SF86061

PATIENT
  Sex: Male
  Weight: 96.6 kg

DRUGS (37)
  1. NEXIUM [Suspect]
     Active Substance: ESOMEPRAZOLE MAGNESIUM
     Indication: GASTROOESOPHAGEAL REFLUX DISEASE
     Route: 048
     Dates: start: 197001, end: 201712
  2. NEXIUM 24HR [Suspect]
     Active Substance: ESOMEPRAZOLE MAGNESIUM
     Indication: GASTROOESOPHAGEAL REFLUX DISEASE
     Route: 048
     Dates: start: 197001, end: 201712
  3. HYDROCODONE [Concomitant]
     Active Substance: HYDROCODONE
  4. ATORVASTATIN [Concomitant]
     Active Substance: ATORVASTATIN
  5. MESTINON [Concomitant]
     Active Substance: PYRIDOSTIGMINE BROMIDE
  6. VERAPAMIL [Concomitant]
     Active Substance: VERAPAMIL HYDROCHLORIDE
  7. NEXIUM 24HR [Suspect]
     Active Substance: ESOMEPRAZOLE MAGNESIUM
     Indication: GASTROOESOPHAGEAL REFLUX DISEASE
     Dosage: OTC
     Route: 048
     Dates: start: 2014, end: 2017
  8. OMEPRAZOLE. [Suspect]
     Active Substance: OMEPRAZOLE
     Indication: GASTROOESOPHAGEAL REFLUX DISEASE
     Route: 065
     Dates: start: 20170616
  9. SERTRALINE [Concomitant]
     Active Substance: SERTRALINE HYDROCHLORIDE
     Indication: DEPRESSION
     Dates: start: 201010, end: 201810
  10. CLOPIDOGREL [Concomitant]
     Active Substance: CLOPIDOGREL BISULFATE
  11. METOPROLOL. [Concomitant]
     Active Substance: METOPROLOL
  12. OMEPRAZOLE. [Suspect]
     Active Substance: OMEPRAZOLE
     Indication: GASTROOESOPHAGEAL REFLUX DISEASE
     Route: 065
     Dates: start: 20191211
  13. AMOXICILLIN. [Concomitant]
     Active Substance: AMOXICILLIN
  14. ATORVASTATIN [Concomitant]
     Active Substance: ATORVASTATIN
  15. LINAGLIPTIN [Concomitant]
     Active Substance: LINAGLIPTIN
  16. LEVAQUIN [Concomitant]
     Active Substance: LEVOFLOXACIN
  17. AMLODIPINE [Concomitant]
     Active Substance: AMLODIPINE BESYLATE
  18. NASONEX [Concomitant]
     Active Substance: MOMETASONE FUROATE
  19. GABAPENTIN. [Concomitant]
     Active Substance: GABAPENTIN
  20. TUMS [Concomitant]
     Active Substance: CALCIUM CARBONATE
     Dates: start: 2017, end: 2020
  21. FLUTICASONE. [Concomitant]
     Active Substance: FLUTICASONE
  22. MELOXICAM. [Concomitant]
     Active Substance: MELOXICAM
  23. MUPIROCIN. [Concomitant]
     Active Substance: MUPIROCIN
  24. NEXIUM [Suspect]
     Active Substance: ESOMEPRAZOLE MAGNESIUM
     Indication: GASTROOESOPHAGEAL REFLUX DISEASE
     Route: 048
     Dates: start: 2001, end: 2017
  25. SYMBICORT [Concomitant]
     Active Substance: BUDESONIDE\FORMOTEROL FUMARATE DIHYDRATE
  26. OMEPRAZOLE. [Suspect]
     Active Substance: OMEPRAZOLE
     Indication: GASTROOESOPHAGEAL REFLUX DISEASE
     Route: 065
     Dates: end: 2018
  27. METFORMIN [Concomitant]
     Active Substance: METFORMIN HYDROCHLORIDE
     Indication: DIABETES MELLITUS
     Dates: start: 200901, end: 201802
  28. METOPROLOL. [Concomitant]
     Active Substance: METOPROLOL
     Indication: HYPERTENSION
     Dates: start: 200902, end: 201011
  29. LOSARTAN. [Concomitant]
     Active Substance: LOSARTAN
     Indication: HYPERTENSION
     Dates: start: 201210, end: 201707
  30. ALKA?SETZER [Concomitant]
     Dates: start: 2017, end: 2020
  31. MECLIZINE [Concomitant]
     Active Substance: MECLIZINE HYDROCHLORIDE
  32. BYSTOLIC [Concomitant]
     Active Substance: NEBIVOLOL HYDROCHLORIDE
  33. OMEPRAZOLE. [Suspect]
     Active Substance: OMEPRAZOLE
     Indication: GASTROOESOPHAGEAL REFLUX DISEASE
     Route: 065
     Dates: end: 2019
  34. VERAPAMIL [Concomitant]
     Active Substance: VERAPAMIL HYDROCHLORIDE
     Indication: HYPERTENSION
     Dates: start: 200903, end: 201304
  35. SPIRONOLACTONE. [Concomitant]
     Active Substance: SPIRONOLACTONE
  36. RELION [Concomitant]
  37. FLUZONE [Concomitant]
     Active Substance: INFLUENZA A VIRUS A/CALIFORNIA/7/2009 X-179A (H1N1) ANTIGEN (FORMALDEHYDE INACTIVATED)\INFLUENZA A VIRUS A/VICTORIA/210/2009 X-187 (H3N2) ANTIGEN (FORMALDEHYDE INACTIVATED)\INFLUENZA B VIRUS B/BRISBANE/60/2008 ANTIGEN (FORMALDEHYDE INACTIVATED)

REACTIONS (3)
  - Acute kidney injury [Unknown]
  - Chronic kidney disease [Unknown]
  - Tubulointerstitial nephritis [Unknown]
